FAERS Safety Report 10914793 (Version 1)
Quarter: 2015Q1

REPORT INFORMATION
  Report Type: Report from Study
  Country: GB (occurrence: GB)
  Receive Date: 20150313
  Receipt Date: 20150313
  Transmission Date: 20150721
  Serious: Yes (Hospitalization, Other)
  Sender: FDA-Public Use
  Company Number: GB-INTERMUNE, INC.-201503IM011252

PATIENT
  Sex: Male

DRUGS (2)
  1. ESBRIET [Suspect]
     Active Substance: PIRFENIDONE
     Dosage: 2403 MG
     Route: 048
  2. ESBRIET [Suspect]
     Active Substance: PIRFENIDONE
     Indication: IDIOPATHIC PULMONARY FIBROSIS
     Route: 048
     Dates: start: 20140721

REACTIONS (5)
  - Blood count abnormal [Recovered/Resolved]
  - Left ventricular failure [Recovered/Resolved]
  - Right ventricular failure [Recovered/Resolved]
  - Liver function test abnormal [Recovered/Resolved]
  - Lower respiratory tract infection [Recovered/Resolved]
